FAERS Safety Report 6793990-3 (Version None)
Quarter: 2010Q2

REPORT INFORMATION
  Report Type: 
  Country: None (occurrence: None)
  Receive Date: 20100624
  Receipt Date: 20090525
  Transmission Date: 20101027
  Serious: Yes (Death, Other)
  Sender: FDA-Public Use
  Company Number: JP-PFIZER INC-2009211488

PATIENT
  Sex: Female
  Weight: 35.5 kg

DRUGS (10)
  1. UNASYN [Suspect]
     Indication: PNEUMONIA
     Dosage: 3 G, 2X/DAY
     Route: 042
     Dates: start: 20090401, end: 20090404
  2. LASIX [Concomitant]
     Dosage: UNK
     Route: 048
     Dates: start: 20080728, end: 20090406
  3. ALLOZYM [Concomitant]
     Dosage: UNK
     Route: 048
     Dates: start: 20080728, end: 20090406
  4. FAMOTIDINE [Concomitant]
     Dosage: UNK
     Route: 048
     Dates: start: 20060201, end: 20090406
  5. URSO 250 [Concomitant]
     Dosage: UNK
     Route: 048
     Dates: start: 20050927, end: 20090406
  6. PANTETHINE [Concomitant]
     Dosage: UNK
     Route: 048
     Dates: start: 20060209, end: 20090406
  7. GASCON [Concomitant]
     Dosage: UNK
     Route: 048
     Dates: start: 20050922, end: 20090406
  8. TEPRENONE [Concomitant]
     Dates: start: 20080818, end: 20090406
  9. THYRADIN S [Concomitant]
     Dosage: UNK
     Route: 048
     Dates: start: 20090124, end: 20090406
  10. MEROPEN [Concomitant]
     Dosage: UNK
     Route: 042
     Dates: start: 20090325, end: 20090331

REACTIONS (1)
  - RENAL FAILURE [None]
